FAERS Safety Report 5427491-1 (Version None)
Quarter: 2007Q3

REPORT INFORMATION
  Report Type: 
  Country: None (occurrence: None)
  Receive Date: 20070824
  Receipt Date: 20070824
  Transmission Date: 20080115
  Serious: Yes (Life-Threatening)
  Sender: FDA-Public Use
  Company Number: None

PATIENT
  Age: 48 Year
  Sex: Female
  Weight: 106.5953 kg

DRUGS (2)
  1. GEODON [Suspect]
     Indication: BIPOLAR DISORDER
     Dosage: 160 MGS PER DAY PO
     Route: 048
     Dates: start: 20060404, end: 20061216
  2. DEPAKOTE [Suspect]
     Indication: BIPOLAR DISORDER
     Dosage: ONCE PER DAY PO
     Route: 048
     Dates: start: 20060404, end: 20061216

REACTIONS (1)
  - ALOPECIA [None]
